FAERS Safety Report 4945437-7 (Version None)
Quarter: 2006Q1

REPORT INFORMATION
  Report Type: 
  Country: None (occurrence: None)
  Receive Date: 20060316
  Receipt Date: 20060310
  Transmission Date: 20060701
  Serious: Yes (Other)
  Sender: FDA-Public Use
  Company Number: US-GLAXOSMITHKLINE-A0597141A

PATIENT
  Age: 39 Year
  Sex: Male

DRUGS (2)
  1. ANCEF [Suspect]
     Indication: PROPHYLAXIS
     Dosage: 6G SINGLE DOSE
     Route: 042
     Dates: start: 20060310, end: 20060310
  2. NO CONCURRENT MEDICATIONS [Concomitant]

REACTIONS (2)
  - ACCIDENTAL OVERDOSE [None]
  - PANCYTOPENIA [None]
